FAERS Safety Report 23442963 (Version 1)
Quarter: 2024Q1

REPORT INFORMATION
  Report Type: Spontaneous
  Country: US (occurrence: None)
  Receive Date: 20240124
  Receipt Date: 20240124
  Transmission Date: 20240409
  Serious: Yes (Other)
  Sender: FDA-Public Use
  Company Number: None

PATIENT
  Age: 28 Year
  Sex: Female
  Weight: 143.8 kg

DRUGS (1)
  1. MOUNJARO [Suspect]
     Active Substance: TIRZEPATIDE
     Indication: Weight control
     Dosage: FREQUENCY : WEEKLY;?
     Route: 058
     Dates: start: 20240115, end: 20240122

REACTIONS (6)
  - Abdominal pain upper [None]
  - Diarrhoea [None]
  - Nausea [None]
  - Dehydration [None]
  - Vomiting [None]
  - Adverse drug reaction [None]

NARRATIVE: CASE EVENT DATE: 20240122
